FAERS Safety Report 4319783-4 (Version None)
Quarter: 2004Q1

REPORT INFORMATION
  Report Type: 
  Country: None (occurrence: None)
  Receive Date: 20040319
  Receipt Date: 20040318
  Transmission Date: 20041129
  Serious: Yes (Other)
  Sender: FDA-Public Use
  Company Number: DE-GLAXOSMITHKLINE-D0043418A

PATIENT
  Age: 27 Year
  Sex: Female
  Weight: 75 kg

DRUGS (2)
  1. AVANDIA [Suspect]
     Dosage: 56MG SINGLE DOSE
     Route: 048
  2. METFORMIN HCL [Suspect]
     Dosage: 11TAB SINGLE DOSE
     Route: 048

REACTIONS (2)
  - NO ADVERSE EFFECT [None]
  - SUICIDE ATTEMPT [None]
